FAERS Safety Report 6008166-7 (Version None)
Quarter: 2008Q4

REPORT INFORMATION
  Report Type: 
  Country: None (occurrence: None)
  Receive Date: 20081217
  Receipt Date: 20080729
  Transmission Date: 20090506
  Serious: No
  Sender: FDA-Public Use
  Company Number: US-ASTRAZENECA-2008UW14811

PATIENT
  Age: 77 Year
  Sex: Female
  Weight: 78 kg

DRUGS (7)
  1. CRESTOR [Suspect]
     Indication: HYPERCHOLESTEROLAEMIA
     Dosage: TAKEN CRESTOR OFF AND ON FOR THE PAST SEVERAL MONTHS
     Route: 048
     Dates: start: 20080101
  2. CRESTOR [Suspect]
     Dosage: TAKEN CRESTOR OFF AND ON FOR THE PAST SEVERAL MONTHS
     Route: 048
     Dates: start: 20080101
  3. TOPROL-XL [Concomitant]
  4. MAXZIDE [Concomitant]
  5. PREVACID [Concomitant]
  6. BENEFIBER [Concomitant]
  7. PROBIOTIC [Concomitant]

REACTIONS (2)
  - DIARRHOEA [None]
  - MUSCLE SPASMS [None]
